FAERS Safety Report 14648091 (Version 1)
Quarter: 2018Q1

REPORT INFORMATION
  Report Type: Spontaneous
  Country: US (occurrence: US)
  Receive Date: 20180315
  Receipt Date: 20180315
  Transmission Date: 20180509
  Serious: Yes (Hospitalization)
  Sender: FDA-Public Use
  Company Number: None

PATIENT
  Age: 58 Year
  Sex: Male
  Weight: 80 kg

DRUGS (2)
  1. LINEZOLID, 600 MG [Suspect]
     Active Substance: LINEZOLID
     Indication: STAPHYLOCOCCAL INFECTION
     Route: 048
  2. LINEZOLID, 600 MG [Suspect]
     Active Substance: LINEZOLID
     Indication: CULTURE WOUND POSITIVE
     Route: 048

REACTIONS (1)
  - Rash [None]

NARRATIVE: CASE EVENT DATE: 20180311
